FAERS Safety Report 8844399 (Version 3)
Quarter: 2012Q4

REPORT INFORMATION
  Report Type: 
  Country: GB (occurrence: GB)
  Receive Date: 20121017
  Receipt Date: 20121123
  Transmission Date: 20130627
  Serious: Yes (Hospitalization)
  Sender: FDA-Public Use
  Company Number: PHFR2012GB005404

PATIENT
  Sex: Female

DRUGS (6)
  1. CLOZARIL [Suspect]
     Indication: SCHIZOPHRENIA
     Dosage: 350 mg
     Route: 048
     Dates: start: 20050309
  2. CLOZARIL [Suspect]
     Dosage: 700 mg
     Route: 048
  3. CLOMIPRAMINE [Suspect]
     Dosage: 200 mg, UNK
     Route: 048
  4. CLONAZEPAM [Suspect]
     Dosage: 4 mg, UNK
     Route: 048
  5. SCOPALAMINIE HYDROBROMIDE [Suspect]
     Dosage: 600 mg, UNK
     Route: 048
  6. AMISULPRIDE [Suspect]
     Dosage: 800 mg, UNK
     Route: 048

REACTIONS (2)
  - Incorrect dose administered [Recovered/Resolved]
  - Emotional distress [Recovered/Resolved]
